FAERS Safety Report 4769344-8 (Version None)
Quarter: 2005Q3

REPORT INFORMATION
  Report Type: 
  Country: None (occurrence: None)
  Receive Date: 20050915
  Receipt Date: 20041217
  Transmission Date: 20060218
  Serious: No
  Sender: FDA-Public Use
  Company Number: US-GLAXOSMITHKLINE-A0537709A

PATIENT
  Age: 31 Year
  Sex: Female

DRUGS (1)
  1. ABREVA [Suspect]

REACTIONS (6)
  - APPLICATION SITE ANAESTHESIA [None]
  - APPLICATION SITE EXFOLIATION [None]
  - APPLICATION SITE INFECTION [None]
  - APPLICATION SITE IRRITATION [None]
  - APPLICATION SITE PAIN [None]
  - APPLICATION SITE VESICLES [None]
